FAERS Safety Report 17209088 (Version 7)
Quarter: 2020Q1

REPORT INFORMATION
  Report Type: Report from Study
  Country: None (occurrence: ES)
  Receive Date: 20191227
  Receipt Date: 20200131
  Transmission Date: 20200409
  Serious: Yes (Hospitalization)
  Sender: FDA-Public Use
  Company Number: ES-ABBVIE-19K-144-3208812-00

PATIENT
  Age: 75 Year
  Sex: Female
  Weight: 55 kg

DRUGS (1)
  1. DUODOPA [Suspect]
     Active Substance: CARBIDOPA\LEVODOPA
     Indication: PARKINSON^S DISEASE
     Route: 050
     Dates: start: 20191219

REACTIONS (7)
  - Pneumoperitoneum [Recovered/Resolved]
  - Pneumonia [Recovering/Resolving]
  - Stoma site pain [Unknown]
  - Intra-abdominal fluid collection [Recovering/Resolving]
  - Musculoskeletal pain [Not Recovered/Not Resolved]
  - Stoma site erythema [Unknown]
  - Stoma site discharge [Unknown]

NARRATIVE: CASE EVENT DATE: 20191220
